FAERS Safety Report 6649795-7 (Version None)
Quarter: 2010Q1

REPORT INFORMATION
  Report Type: 
  Country: None (occurrence: None)
  Receive Date: 20100322
  Receipt Date: 20100308
  Transmission Date: 20100710
  Serious: Yes (Death, Other)
  Sender: FDA-Public Use
  Company Number: KADN20100062

PATIENT
  Age: 36 Year
  Sex: Male

DRUGS (7)
  1. MORPHINE [Suspect]
     Indication: DRUG USE FOR UNKNOWN INDICATION
     Dosage: PER ORAL
     Route: 048
     Dates: end: 20080101
  2. OXYCODONE [Suspect]
     Indication: DRUG USE FOR UNKNOWN INDICATION
     Dosage: PER ORAL
     Route: 048
     Dates: end: 20080101
  3. HYDROCODONE BITARTRATE AND ACETAMINOPHEN [Suspect]
     Indication: DRUG USE FOR UNKNOWN INDICATION
     Dosage: PER ORAL
     Route: 048
     Dates: end: 20080101
  4. DIPHENHYDRAMINE HYDROCHLORIDE [Suspect]
     Indication: DRUG USE FOR UNKNOWN INDICATION
     Dates: end: 20080101
  5. PAROXETINE HCL [Suspect]
     Indication: DRUG USE FOR UNKNOWN INDICATION
     Dates: end: 20080101
  6. METHYLPHENIDATE [Suspect]
     Indication: DRUG USE FOR UNKNOWN INDICATION
     Dates: end: 20080101
  7. DEXTROMETHORPHAN [Suspect]
     Indication: DRUG USE FOR UNKNOWN INDICATION
     Dates: end: 20080101

REACTIONS (3)
  - ACCIDENTAL DEATH [None]
  - DRUG TOXICITY [None]
  - UNRESPONSIVE TO STIMULI [None]
